FAERS Safety Report 5716947-X (Version None)
Quarter: 2008Q2

REPORT INFORMATION
  Report Type: 
  Country: None (occurrence: None)
  Receive Date: 20080424
  Receipt Date: 20080416
  Transmission Date: 20081010
  Serious: Yes (Other)
  Sender: FDA-Public Use
  Company Number: US-PFIZER INC-2008034333

PATIENT
  Sex: Female
  Weight: 27.7 kg

DRUGS (2)
  1. CELEBREX [Suspect]
     Indication: PAIN
     Route: 048
  2. PREVACID [Concomitant]

REACTIONS (4)
  - BURNING SENSATION [None]
  - LIP BLISTER [None]
  - PHOTOPHOBIA [None]
  - VISION BLURRED [None]
